FAERS Safety Report 21929536 (Version 1)
Quarter: 2023Q1

REPORT INFORMATION
  Report Type: Spontaneous
  Country: US (occurrence: US)
  Receive Date: 20230131
  Receipt Date: 20230131
  Transmission Date: 20230417
  Serious: Yes (Other)
  Sender: FDA-Public Use
  Company Number: US-UCBSA-2022060208

PATIENT
  Age: 15 Year
  Sex: Male

DRUGS (3)
  1. LEVETIRACETAM [Suspect]
     Active Substance: LEVETIRACETAM
     Indication: Seizure prophylaxis
     Dosage: UNK
  2. DEXTROMETHORPHAN [Suspect]
     Active Substance: DEXTROMETHORPHAN
     Indication: Neurotoxicity
     Dosage: OROGASTRIC TUBE
  3. KETAMINE [Concomitant]
     Active Substance: KETAMINE
     Indication: Neurological examination
     Dosage: 30 MCG/KG/MIN

REACTIONS (1)
  - Depressed mood [Unknown]
